FAERS Safety Report 7938378-4 (Version None)
Quarter: 2011Q4

REPORT INFORMATION
  Report Type: 
  Country: None (occurrence: None)
  Receive Date: 20111123
  Receipt Date: 20111116
  Transmission Date: 20120403
  Serious: Yes (Hospitalization)
  Sender: FDA-Public Use
  Company Number: US-GLAXOSMITHKLINE-A0782962A

PATIENT
  Age: 55 Year
  Sex: Male
  Weight: 91.4 kg

DRUGS (12)
  1. LANTUS [Concomitant]
  2. METFORMIN [Concomitant]
  3. ACTOS [Concomitant]
  4. DIOVAN [Concomitant]
  5. AVANDIA [Suspect]
     Indication: DIABETES MELLITUS
     Dosage: 8MG PER DAY
     Route: 048
     Dates: start: 20051101, end: 20070701
  6. ZITHROMAX [Concomitant]
  7. CRESTOR [Concomitant]
  8. PROTONIX [Concomitant]
  9. ROCEPHIN [Concomitant]
  10. LASIX [Concomitant]
  11. CATAPRES [Concomitant]
  12. EPOGEN [Concomitant]

REACTIONS (2)
  - CARDIAC FAILURE CONGESTIVE [None]
  - MYOCARDIAL INFARCTION [None]
